FAERS Safety Report 9504331 (Version 2)
Quarter: 2013Q3

REPORT INFORMATION
  Report Type: Report from Study
  Country: US (occurrence: US)
  Receive Date: 20130906
  Receipt Date: 20130909
  Transmission Date: 20140515
  Serious: Yes (Hospitalization)
  Sender: FDA-Public Use
  Company Number: US-ABBOTT-13P-163-1140903-00

PATIENT
  Age: 76 Year
  Sex: Male
  Weight: 62.65 kg

DRUGS (2)
  1. HUMIRA [Suspect]
     Indication: RHEUMATOID ARTHRITIS
     Dates: start: 2003, end: 201106
  2. ORENCIA [Suspect]
     Indication: RHEUMATOID ARTHRITIS
     Dates: start: 2012

REACTIONS (4)
  - Hyperhidrosis [Recovered/Resolved]
  - Arthritis [Recovered/Resolved]
  - Arterial occlusive disease [Recovered/Resolved]
  - Dyspnoea [Recovered/Resolved]
